FAERS Safety Report 9615833 (Version 1)
Quarter: 2013Q4

REPORT INFORMATION
  Report Type: Spontaneous
  Country: PL (occurrence: PL)
  Receive Date: 20131011
  Receipt Date: 20131011
  Transmission Date: 20140711
  Serious: Yes (Life-Threatening, Hospitalization)
  Sender: FDA-Public Use
  Company Number: PL-UCBSA-099713

PATIENT
  Age: 3 Year
  Sex: Female

DRUGS (5)
  1. LEVETIRACETAM [Suspect]
     Indication: EPILEPSY
     Dosage: UNKNOWN DOSE
  2. GANCICLOVIR [Concomitant]
     Indication: EPILEPSY
     Dosage: UNKNOWN DOSE
  3. SODIUM VALPROATE [Concomitant]
     Indication: EPILEPSY
     Dosage: UNKNOWN DOSE
  4. VIGABATRIN [Concomitant]
     Indication: EPILEPSY
     Dosage: UNKNOWN DOSE
  5. LAMOTRIGINE [Concomitant]
     Indication: EPILEPSY
     Dosage: (SINCE INFANCY) UNKNOWN DOSE

REACTIONS (1)
  - Pneumonia lipoid [Recovering/Resolving]
